FAERS Safety Report 12785329 (Version 1)
Quarter: 2016Q3

REPORT INFORMATION
  Report Type: Spontaneous
  Country: US (occurrence: US)
  Receive Date: 20160927
  Receipt Date: 20160927
  Transmission Date: 20161109
  Serious: No
  Sender: FDA-Public Use
  Company Number: US-MEDA-2016090057

PATIENT
  Sex: Female

DRUGS (2)
  1. FORADIL [Concomitant]
     Active Substance: FORMOTEROL FUMARATE
  2. AEROSPAN [Suspect]
     Active Substance: FLUNISOLIDE
     Indication: ASTHMA

REACTIONS (1)
  - Drug ineffective [Unknown]
